FAERS Safety Report 6308297-8 (Version None)
Quarter: 2009Q3

REPORT INFORMATION
  Report Type: 
  Country: None (occurrence: None)
  Receive Date: 20090813
  Receipt Date: 20090805
  Transmission Date: 20100115
  Serious: Yes (Life-Threatening, Hospitalization)
  Sender: FDA-Public Use
  Company Number: FR-MERCK-0908FRA00009

PATIENT
  Age: 74 Year
  Sex: Female

DRUGS (11)
  1. FOSAMAX [Suspect]
     Indication: OSTEOPOROSIS
     Route: 048
  2. ADALIMUMAB [Suspect]
     Indication: RHEUMATOID ARTHRITIS
     Route: 051
  3. LEFLUNOMIDE [Suspect]
     Indication: RHEUMATOID ARTHRITIS
     Route: 048
     Dates: start: 20021201
  4. PREDNISONE [Suspect]
     Indication: RHEUMATOID ARTHRITIS
     Route: 048
  5. PERINDOPRIL ARGININE [Suspect]
     Indication: HYPERTENSION
     Route: 048
  6. DIVALPROEX SODIUM [Suspect]
     Route: 048
  7. BISOPROLOL FUMARATE [Suspect]
     Indication: HYPERTENSION
     Route: 048
  8. MIRTAZAPINE [Suspect]
     Indication: DEPRESSION
     Route: 048
  9. GABAPENTIN [Suspect]
     Route: 048
  10. TRAMADOL HYDROCHLORIDE [Suspect]
     Route: 048
  11. OMEPRAZOLE [Suspect]
     Route: 048

REACTIONS (1)
  - PULMONARY EMBOLISM [None]
